FAERS Safety Report 15051357 (Version 1)
Quarter: 2018Q2

REPORT INFORMATION
  Report Type: Spontaneous
  Country: GB (occurrence: GB)
  Receive Date: 20180622
  Receipt Date: 20180622
  Transmission Date: 20180711
  Serious: Yes (Other)
  Sender: FDA-Public Use
  Company Number: GB-DRREDDYS-GER/UKI/18/0100810

PATIENT
  Age: 44 Year
  Sex: Male
  Weight: 132 kg

DRUGS (2)
  1. LANSOPRAZOLE. [Concomitant]
     Active Substance: LANSOPRAZOLE
     Indication: PRODUCT USED FOR UNKNOWN INDICATION
  2. AMLODIPINE [Suspect]
     Active Substance: AMLODIPINE BESYLATE
     Indication: HYPERTENSION
     Route: 048
     Dates: start: 20180316, end: 20180417

REACTIONS (3)
  - Gingival pain [Unknown]
  - Gingival swelling [Unknown]
  - Gingival hypertrophy [Not Recovered/Not Resolved]

NARRATIVE: CASE EVENT DATE: 20180404
